FAERS Safety Report 5121245-1 (Version None)
Quarter: 2006Q4

REPORT INFORMATION
  Report Type: 
  Country: None (occurrence: None)
  Receive Date: 20061002
  Receipt Date: 20060917
  Transmission Date: 20070319
  Serious: Yes (Other)
  Sender: FDA-Public Use
  Company Number: 2006019257

PATIENT
  Sex: Male
  Weight: 92.5338 kg

DRUGS (9)
  1. NEURONTIN [Suspect]
     Indication: NEURALGIA
     Dosage: 1800 MG
     Dates: end: 20060101
  2. LYRICA [Suspect]
     Indication: NEURALGIA
     Dosage: 600 MG (200 MG, 3 IN 1 D)
     Dates: start: 20060101
  3. ACTOS [Suspect]
     Indication: DIABETES MELLITUS
  4. OXYCODONE HCL [Concomitant]
  5. TRICOR [Concomitant]
  6. PROZAC [Concomitant]
  7. WELCHOL [Concomitant]
  8. MORPHINE [Concomitant]
  9. METHADONE HCL [Concomitant]

REACTIONS (8)
  - BLOOD GLUCOSE DECREASED [None]
  - DRUG INTERACTION [None]
  - FATIGUE [None]
  - NAIL DISCOLOURATION [None]
  - NAIL DISORDER [None]
  - SWELLING [None]
  - TREMOR [None]
  - WEIGHT INCREASED [None]
